FAERS Safety Report 7710897-5 (Version None)
Quarter: 2011Q3

REPORT INFORMATION
  Report Type: 
  Country: None (occurrence: None)
  Receive Date: 20110825
  Receipt Date: 20110816
  Transmission Date: 20111222
  Serious: Yes (Other)
  Sender: FDA-Public Use
  Company Number: AU-ASTRAZENECA-2011SE49416

PATIENT
  Age: 62 Year
  Sex: Male

DRUGS (5)
  1. ASPIRIN [Suspect]
  2. FELODIPINE [Suspect]
     Route: 048
  3. CRESTOR [Suspect]
     Route: 048
  4. MONOPLUS NOS [Suspect]
  5. PANTOPRAZOLE [Suspect]
     Dates: start: 20000101

REACTIONS (1)
  - OSTEONECROSIS [None]
